FAERS Safety Report 16672961 (Version 1)
Quarter: 2019Q3

REPORT INFORMATION
  Report Type: Spontaneous
  Country: FR (occurrence: FR)
  Receive Date: 20190806
  Receipt Date: 20190806
  Transmission Date: 20191004
  Serious: Yes (Hospitalization)
  Sender: FDA-Public Use
  Company Number: FR-JNJFOC-20190803004

PATIENT
  Age: 15 Year
  Sex: Female
  Weight: 55 kg

DRUGS (3)
  1. DOLIPRANE [Suspect]
     Active Substance: ACETAMINOPHEN
     Indication: SUICIDE ATTEMPT
     Dosage: : IN TOTAL
     Route: 048
     Dates: start: 20180313, end: 20180313
  2. SPASFON (PHLOROGLUCINOL/TRIMETHYLPHLOROGLUCINOL) [Suspect]
     Active Substance: PHLOROGLUCINOL\1,3,5-TRIMETHOXYBENZENE
     Indication: SUICIDE ATTEMPT
     Dosage: IN TOTAL
     Route: 048
     Dates: start: 20180313, end: 20180313
  3. CETIRIZINE HYDROCHLORIDE. [Suspect]
     Active Substance: CETIRIZINE HYDROCHLORIDE
     Indication: SUICIDE ATTEMPT
     Dosage: ; IN TOTAL
     Route: 048
     Dates: start: 20180313, end: 20180313

REACTIONS (5)
  - Analgesic drug level increased [Recovered/Resolved]
  - Toxicity to various agents [Recovered/Resolved]
  - Vomiting [Recovered/Resolved]
  - Somnolence [Recovered/Resolved]
  - Transaminases increased [Recovered/Resolved]

NARRATIVE: CASE EVENT DATE: 20180313
